FAERS Safety Report 8763672 (Version 1)
Quarter: 2012Q4

REPORT INFORMATION
  Report Type: Spontaneous
  Country: US (occurrence: None)
  Receive Date: 20120831
  Receipt Date: 20120831
  Transmission Date: 20130627
  Serious: Yes (Life-Threatening)
  Sender: FDA-Public Use
  Company Number: None

PATIENT
  Sex: Female
  Weight: 81.65 kg

DRUGS (1)
  1. MACROBID [Suspect]
     Route: 048
     Dates: start: 20120807, end: 20120809

REACTIONS (2)
  - Dyspnoea [None]
  - Pulmonary oedema [None]
